FAERS Safety Report 7153517-3 (Version None)
Quarter: 2010Q4

REPORT INFORMATION
  Report Type: 
  Country: None (occurrence: None)
  Receive Date: 20101213
  Receipt Date: 20101206
  Transmission Date: 20110411
  Serious: Yes (Other)
  Sender: FDA-Public Use
  Company Number: B0688787A

PATIENT
  Age: 16 Year
  Sex: Male

DRUGS (1)
  1. ARYTHMOL [Suspect]
     Indication: WOLFF-PARKINSON-WHITE SYNDROME
     Dosage: 300MG TWICE PER DAY
     Route: 048
     Dates: start: 20100601

REACTIONS (3)
  - ABDOMINAL DISTENSION [None]
  - PAIN [None]
  - WEIGHT DECREASED [None]
